FAERS Safety Report 6359925-2 (Version None)
Quarter: 2009Q3

REPORT INFORMATION
  Report Type: 
  Country: None (occurrence: None)
  Receive Date: 20090917
  Receipt Date: 20090908
  Transmission Date: 20100115
  Serious: Yes (Hospitalization)
  Sender: FDA-Public Use
  Company Number: GR-ABBOTT-09P-066-0582668-00

PATIENT
  Age: 75 Year
  Sex: Female
  Weight: 60 kg

DRUGS (17)
  1. ZEMPLAR [Suspect]
     Indication: HYPERPARATHYROIDISM SECONDARY
     Route: 042
     Dates: start: 20090123
  2. EPREX [Concomitant]
     Indication: ANAEMIA
  3. EPREX [Concomitant]
     Indication: RENAL FAILURE CHRONIC
  4. VENOFER [Concomitant]
     Indication: ANAEMIA
  5. VENOFER [Concomitant]
     Indication: RENAL FAILURE CHRONIC
  6. SUPERAMIN [Concomitant]
     Indication: RENAL FAILURE CHRONIC
  7. NEUROBION [Concomitant]
     Indication: RENAL FAILURE CHRONIC
  8. FORSENOL [Concomitant]
     Indication: RENAL FAILURE CHRONIC
  9. TITRALAC [Concomitant]
     Indication: RENAL FAILURE CHRONIC
  10. PLENDIL [Concomitant]
     Indication: RENAL FAILURE CHRONIC
  11. LIPITOR [Concomitant]
     Indication: DYSLIPIDAEMIA
  12. SALOSPIR [Concomitant]
     Indication: RENAL FAILURE CHRONIC
  13. LOPRESSOR [Concomitant]
     Indication: HYPERTENSION
  14. ANGORON [Concomitant]
     Indication: DRUG USE FOR UNKNOWN INDICATION
  15. PLAVIX [Concomitant]
     Indication: DRUG USE FOR UNKNOWN INDICATION
  16. PRILOSEC [Concomitant]
     Indication: PROPHYLAXIS AGAINST GASTROINTESTINAL ULCER
  17. MEDROL [Concomitant]
     Indication: DRUG USE FOR UNKNOWN INDICATION

REACTIONS (2)
  - DIVERTICULUM INTESTINAL [None]
  - GASTROINTESTINAL HAEMORRHAGE [None]
